FAERS Safety Report 9983258 (Version 1)
Quarter: 2014Q1

REPORT INFORMATION
  Report Type: Report from Study
  Country: US (occurrence: US)
  Receive Date: 20140307
  Receipt Date: 20140307
  Transmission Date: 20141002
  Serious: No
  Sender: FDA-Public Use
  Company Number: US-ABBVIE-13P-163-1178273-00

PATIENT
  Age: 29 Year
  Sex: Male

DRUGS (5)
  1. HUMIRA [Suspect]
     Indication: PSORIASIS
     Dates: start: 20131115, end: 20131115
  2. HUMIRA [Suspect]
     Dates: start: 20131122
  3. HUMIRA [Suspect]
     Dates: start: 20131206
  4. XANAX [Concomitant]
     Indication: ANXIETY
     Dosage: 1/2 TABLET IN AM AND PM
  5. ADDERALL [Concomitant]
     Indication: DISTURBANCE IN ATTENTION
     Dosage: 1/2 TABLET IN AM AND PM

REACTIONS (9)
  - Incorrect route of drug administration [Recovering/Resolving]
  - Device malfunction [Unknown]
  - Drug dose omission [Unknown]
  - Injection site pain [Unknown]
  - Emotional disorder [Unknown]
  - Psoriatic arthropathy [Not Recovered/Not Resolved]
  - Back pain [Unknown]
  - Tension [Unknown]
  - Stress [Unknown]
